FAERS Safety Report 5557869-7 (Version None)
Quarter: 2007Q4

REPORT INFORMATION
  Report Type: 
  Country: None (occurrence: None)
  Receive Date: 20071214
  Receipt Date: 20071204
  Transmission Date: 20080405
  Serious: Yes (Death)
  Sender: FDA-Public Use
  Company Number: AT-ELI_LILLY_AND_COMPANY-AT200709005967

PATIENT
  Age: 74 Year
  Sex: Male
  Weight: 92 kg

DRUGS (9)
  1. GEMZAR [Suspect]
     Indication: TRANSITIONAL CELL CANCER OF THE RENAL PELVIS AND URETER
     Dosage: 2423 MG, UNK
     Route: 042
     Dates: start: 20070815
  2. ENALAPRIL MALEATE AND HYDROCHLOROTHIAZIDE [Concomitant]
     Dosage: UNK, DAILY (1/D)
     Route: 065
  3. AMLODIPIN /00972401/ [Concomitant]
     Dosage: 5 MG, 2/D
     Route: 065
  4. PANTOLOC                           /01263201/ [Concomitant]
     Dosage: 40 MG, DAILY (1/D)
     Route: 065
  5. AMARYL [Concomitant]
     Dosage: 3 MG, DAILY (1/D)
     Route: 065
  6. TRAMADOL HCL [Concomitant]
     Dosage: 100 MG, 2/D
     Route: 065
  7. NOVALGIN [Concomitant]
     Dosage: 1 G, 3/D
     Route: 065
  8. NEURONTIN [Concomitant]
     Dosage: 300 MG, 2/D
     Route: 065
  9. LASIX [Concomitant]
     Dosage: 60 MG, 2/D
     Route: 065

REACTIONS (1)
  - MULTI-ORGAN FAILURE [None]
